FAERS Safety Report 9342816 (Version 2)
Quarter: 2015Q4

REPORT INFORMATION
  Report Type: Spontaneous
  Country: FR (occurrence: FR)
  Receive Date: 20130611
  Receipt Date: 20151111
  Transmission Date: 20160305
  Serious: Yes (Life-Threatening, Hospitalization, Other)
  Sender: FDA-Public Use
  Company Number: FR-PFIZER INC-2013172419

PATIENT
  Age: 4 Week
  Sex: Male
  Weight: 3.44 kg

DRUGS (7)
  1. GARDENAL [Concomitant]
     Active Substance: PHENOBARBITAL
     Dosage: 10 MG/KG, UNK
     Dates: start: 20130511, end: 20130511
  2. PRODILANTIN [Suspect]
     Active Substance: FOSPHENYTOIN SODIUM
     Dosage: 5 MG/KG IN 1 HOUR FOR AT LEAST 4 HOURS
     Route: 041
     Dates: end: 20130512
  3. HYPNOVEL [Concomitant]
     Active Substance: MIDAZOLAM\MIDAZOLAM HYDROCHLORIDE
     Dosage: 15 GAMMA/KG/HOUR
     Dates: start: 20130512, end: 20130512
  4. GARDENAL [Concomitant]
     Active Substance: PHENOBARBITAL
     Indication: SEIZURE
     Dosage: 20 MG/KG, UNK
     Dates: start: 20130511, end: 20130511
  5. SUFENTANIL [Concomitant]
     Active Substance: SUFENTANIL
     Indication: SEDATION
     Dosage: 0.2 ?G/KG/HOUR THEN 0.1 ?G/KG/HOUR
     Dates: start: 20130511, end: 20130511
  6. HYPNOVEL [Concomitant]
     Active Substance: MIDAZOLAM\MIDAZOLAM HYDROCHLORIDE
     Indication: SEDATION
     Dosage: 100 ?G/KG/HOUR
     Dates: start: 20130511, end: 20130511
  7. PRODILANTIN [Suspect]
     Active Substance: FOSPHENYTOIN SODIUM
     Indication: SEIZURE
     Dosage: 15 MG/KG IN 30 MINUTES
     Route: 041
     Dates: start: 20130511

REACTIONS (10)
  - Hyponatraemia [Recovered/Resolved]
  - Product use issue [Recovered/Resolved]
  - Cardiac failure [Recovered/Resolved]
  - Drug level increased [Recovered/Resolved]
  - Hyperkalaemia [Recovered/Resolved]
  - Nerve injury [Unknown]
  - Atrioventricular block second degree [Recovered/Resolved]
  - Liver injury [Recovered/Resolved]
  - Seizure [Unknown]
  - Incorrect dose administered [Recovered/Resolved]

NARRATIVE: CASE EVENT DATE: 20130311
